FAERS Safety Report 4816794-7 (Version None)
Quarter: 2005Q4

REPORT INFORMATION
  Report Type: 
  Country: None (occurrence: None)
  Receive Date: 20051028
  Receipt Date: 20051019
  Transmission Date: 20060501
  Serious: Yes (Hospitalization)
  Sender: FDA-Public Use
  Company Number: GXBR2005US01583

PATIENT
  Age: 86 Year
  Sex: Female
  Weight: 54.4 kg

DRUGS (8)
  1. PROMETHAZINE HCL [Suspect]
     Indication: NAUSEA
     Dosage: 25MG AT 14:30. 25 MG AT 21:00, ORAL
     Route: 048
     Dates: start: 20051007, end: 20051007
  2. LISINOPRIL [Concomitant]
  3. DILTIA XT                 (DILTIAZEM HYDROCHLORIDE) [Concomitant]
  4. PROTONIX [Concomitant]
  5. ALPHAGAN [Concomitant]
  6. COSOPT [Concomitant]
  7. FOLTRIN [Concomitant]
  8. QUININE SULFATE [Concomitant]

REACTIONS (3)
  - AMNESIA [None]
  - CONFUSIONAL STATE [None]
  - DISORIENTATION [None]
